FAERS Safety Report 9305708 (Version 1)
Quarter: 2013Q2

REPORT INFORMATION
  Report Type: Spontaneous
  Country: US (occurrence: US)
  Receive Date: 20130523
  Receipt Date: 20130523
  Transmission Date: 20140414
  Serious: Yes (Hospitalization)
  Sender: FDA-Public Use
  Company Number: US-ELI_LILLY_AND_COMPANY-US201305004471

PATIENT
  Age: 26 Year
  Sex: Female

DRUGS (6)
  1. HUMALOG 25% LISPRO, 75% NPL [Suspect]
     Indication: TYPE 2 DIABETES MELLITUS
     Dosage: 50 U, BID
     Dates: start: 201108
  2. HUMALOG 25% LISPRO, 75% NPL [Suspect]
     Dosage: 50 U, BID
  3. ATORVASTATIN [Concomitant]
     Dosage: UNK, QD
  4. DAILY VITAMINS [Concomitant]
  5. MOTRIN [Concomitant]
     Dosage: UNK, PRN
  6. MIDOL [Concomitant]
     Dosage: UNK, PRN

REACTIONS (7)
  - Pharyngitis streptococcal [Unknown]
  - Fungal infection [Unknown]
  - Urinary tract infection [Unknown]
  - Heart rate increased [Unknown]
  - Hyperglycaemia [Unknown]
  - Oropharyngeal pain [Unknown]
  - Hyperglycaemia [Unknown]
